FAERS Safety Report 5706179-3 (Version None)
Quarter: 2008Q2

REPORT INFORMATION
  Report Type: 
  Country: None (occurrence: None)
  Receive Date: 20080415
  Receipt Date: 20080403
  Transmission Date: 20081010
  Serious: Yes (Other)
  Sender: FDA-Public Use
  Company Number: US-PFIZER INC-2008029949

PATIENT
  Sex: Female
  Weight: 131.81 kg

DRUGS (10)
  1. NEURONTIN [Suspect]
     Indication: FIBROMYALGIA
     Route: 048
  2. NEURONTIN [Interacting]
     Indication: BURNING SENSATION
  3. NEURONTIN [Interacting]
     Indication: NEURALGIA
  4. LYRICA [Interacting]
     Indication: FIBROMYALGIA
     Route: 048
  5. MONTELUKAST SODIUM [Concomitant]
     Route: 048
  6. TENORMIN [Concomitant]
     Route: 048
  7. LASIX [Concomitant]
     Route: 048
  8. ZESTRIL [Concomitant]
     Route: 048
  9. ACETYLSALICYLIC ACID SRT [Concomitant]
     Route: 048
  10. ZANTAC [Concomitant]
     Route: 048

REACTIONS (4)
  - DRUG INTERACTION [None]
  - NERVE INJURY [None]
  - NEURALGIA [None]
  - SPINAL FUSION ACQUIRED [None]
